FAERS Safety Report 5757565-7 (Version None)
Quarter: 2008Q2

REPORT INFORMATION
  Report Type: 
  Country: None (occurrence: None)
  Receive Date: 20080529
  Receipt Date: 20080520
  Transmission Date: 20081010
  Serious: Yes (Other)
  Sender: FDA-Public Use
  Company Number: 144-20785-08051292

PATIENT
  Age: 84 Year
  Sex: Female

DRUGS (3)
  1. THALOMID [Suspect]
     Indication: LEPROSY
     Dosage: 100 MG, 1 IN 1 D, ORAL
     Route: 048
  2. PREDNISONE TAB [Suspect]
     Indication: LEPROSY
     Dosage: 30 MG, 1 IN 1 D, ORAL
     Route: 048
  3. VITAMIN B-COMPLEX (VITAMIN B-COMPLEX) [Concomitant]

REACTIONS (25)
  - ANAEMIA [None]
  - BACILLUS INFECTION [None]
  - ECTROPION [None]
  - ERYTHEMA [None]
  - FIBROMA [None]
  - HAEMORRHAGE [None]
  - HEPATITIS TOXIC [None]
  - HYPERKERATOSIS [None]
  - HYPOREFLEXIA [None]
  - ILL-DEFINED DISORDER [None]
  - MADAROSIS [None]
  - MUSCLE ATROPHY [None]
  - NECROSIS [None]
  - NEUROLOGICAL EXAMINATION ABNORMAL [None]
  - OEDEMA [None]
  - PARAESTHESIA [None]
  - RASH MACULO-PAPULAR [None]
  - RASH PAPULAR [None]
  - SCAB [None]
  - SCLERODERMA [None]
  - SKIN DISORDER [None]
  - SKIN HYPERPIGMENTATION [None]
  - SKIN HYPERTROPHY [None]
  - SUBCUTANEOUS NODULE [None]
  - ULCER [None]
